FAERS Safety Report 4709222-3 (Version None)
Quarter: 2005Q3

REPORT INFORMATION
  Report Type: 
  Country: None (occurrence: None)
  Receive Date: 20050706
  Receipt Date: 20050621
  Transmission Date: 20060218
  Serious: Yes (Hospitalization)
  Sender: FDA-Public Use
  Company Number: RENA-11397

PATIENT
  Age: 55 Year
  Sex: Male

DRUGS (8)
  1. PHOSBLOCK - 250 MG TABLET [Suspect]
     Indication: HYPERPHOSPHATAEMIA
     Dosage: 2.25 G DAILY PO
     Route: 048
     Dates: start: 20040227, end: 20050225
  2. PHOSBLOCK - 250 MG TABLET [Suspect]
     Indication: HYPERPHOSPHATAEMIA
     Dosage: 1.5 G DAILY PO
     Route: 048
     Dates: start: 20031126, end: 20040226
  3. VALSARTAN [Concomitant]
  4. GUANABENZ ACETATE [Concomitant]
  5. FALECALCITRIOL (VITAMIN D3) [Concomitant]
  6. NIFEDIPINE [Concomitant]
  7. DOXAZOSIN MESYLATE [Concomitant]
  8. ZOPICLONE [Concomitant]

REACTIONS (4)
  - HAEMATEMESIS [None]
  - HAEMATOCRIT DECREASED [None]
  - ILEUS [None]
  - NASOPHARYNGITIS [None]
